FAERS Safety Report 18107537 (Version 3)
Quarter: 2020Q3

REPORT INFORMATION
  Report Type: Report from Study
  Country: FR (occurrence: FR)
  Receive Date: 20200804
  Receipt Date: 20200924
  Transmission Date: 20201103
  Serious: Yes (Death, Life-Threatening)
  Sender: FDA-Public Use
  Company Number: FR-ROCHE-2650378

PATIENT
  Age: 67 Year
  Sex: Male

DRUGS (15)
  1. OBINUTUZUMAB. [Suspect]
     Active Substance: OBINUTUZUMAB
     Dosage: CYCLE 1BIS TO CYCLE 6, D1 OF EACH CYCLE
     Route: 042
     Dates: start: 20180905, end: 20190123
  2. VENETOCLAX. [Suspect]
     Active Substance: VENETOCLAX
     Dosage: CYCLE 2 TO CYCLE 22
     Route: 048
     Dates: start: 20181003, end: 20200512
  3. OBINUTUZUMAB. [Suspect]
     Active Substance: OBINUTUZUMAB
     Dosage: CYCLE 8 AT D1
     Route: 042
     Dates: start: 20190320, end: 20190320
  4. OBINUTUZUMAB. [Suspect]
     Active Substance: OBINUTUZUMAB
     Dosage: CYCLE 12 AT D1
     Route: 042
     Dates: start: 20190710, end: 20190710
  5. OBINUTUZUMAB. [Suspect]
     Active Substance: OBINUTUZUMAB
     Dosage: CYCLE 14 AT D1
     Route: 042
     Dates: start: 20190904, end: 20190904
  6. VENETOCLAX. [Suspect]
     Active Substance: VENETOCLAX
     Dosage: CYCLE 1BIS, D15 TO D21
     Route: 048
     Dates: start: 20180919, end: 20180925
  7. OBINUTUZUMAB. [Suspect]
     Active Substance: OBINUTUZUMAB
     Dosage: CYCLE 18 AT D1
     Route: 042
     Dates: start: 20191224, end: 20191224
  8. VENETOCLAX. [Suspect]
     Active Substance: VENETOCLAX
     Indication: MANTLE CELL LYMPHOMA
     Dosage: CYCLE 1BIS, D1 TO D7
     Route: 048
     Dates: start: 20180905, end: 20180911
  9. VENETOCLAX. [Suspect]
     Active Substance: VENETOCLAX
     Dosage: CYCLE 1BIS, D8 TO D14
     Route: 048
     Dates: start: 20180912, end: 20180918
  10. VENETOCLAX. [Suspect]
     Active Substance: VENETOCLAX
     Dosage: CYCLE 1BIS, D22 TO D28
     Route: 048
     Dates: start: 20180925, end: 20181002
  11. OBINUTUZUMAB. [Suspect]
     Active Substance: OBINUTUZUMAB
     Indication: MANTLE CELL LYMPHOMA
     Dosage: 100MG AT D1 AND 900MG AT D2; 1000MG AT D8 AND D15
     Route: 042
     Dates: start: 20180808, end: 20180822
  12. OBINUTUZUMAB. [Suspect]
     Active Substance: OBINUTUZUMAB
     Dosage: CYCLE 10 AT D1
     Route: 042
     Dates: start: 20190515, end: 20190515
  13. OBINUTUZUMAB. [Suspect]
     Active Substance: OBINUTUZUMAB
     Dosage: CYCLE 16 AT D1
     Route: 042
     Dates: start: 20191030, end: 20191030
  14. IBRUTINIB [Suspect]
     Active Substance: IBRUTINIB
     Indication: MANTLE CELL LYMPHOMA
     Dosage: FROM CYCLE 1 TO CYCLE 22
     Route: 048
     Dates: start: 20180809, end: 20200512
  15. OBINUTUZUMAB. [Suspect]
     Active Substance: OBINUTUZUMAB
     Dosage: CYCLE 20 AT D1
     Route: 042
     Dates: start: 20200219, end: 20200219

REACTIONS (2)
  - Bladder cancer [Not Recovered/Not Resolved]
  - Progressive multifocal leukoencephalopathy [Fatal]

NARRATIVE: CASE EVENT DATE: 20200710
